FAERS Safety Report 9155491 (Version 1)
Quarter: 2020Q3

REPORT INFORMATION
  Report Type: Spontaneous
  Country: DK (occurrence: DK)
  Receive Date: 20130311
  Receipt Date: 20130311
  Transmission Date: 20201104
  Serious: Yes (Death)
  Sender: FDA-Public Use
  Company Number: DK-JNJFOC-20130302865

PATIENT

DRUGS (2)
  1. CEDIRANIB. [Suspect]
     Active Substance: CEDIRANIB
     Indication: PRODUCT USED FOR UNKNOWN INDICATION
     Route: 048
  2. KETOCONAZOLE. [Suspect]
     Active Substance: KETOCONAZOLE
     Indication: PRODUCT USED FOR UNKNOWN INDICATION
     Dosage: FOR 3 DAYS (DAYS 8?10)
     Route: 048

REACTIONS (2)
  - Myocardial infarction [Fatal]
  - Pericardial haemorrhage [Fatal]
